FAERS Safety Report 11179412 (Version 1)
Quarter: 2015Q2

REPORT INFORMATION
  Report Type: Report from Study
  Country: US (occurrence: US)
  Receive Date: 20150611
  Receipt Date: 20150611
  Transmission Date: 20150821
  Serious: Yes (Hospitalization)
  Sender: FDA-Public Use
  Company Number: PHEH2015US010653

PATIENT
  Sex: Female
  Weight: 62.13 kg

DRUGS (1)
  1. GILENYA [Suspect]
     Active Substance: FINGOLIMOD HYDROCHLORIDE
     Indication: MULTIPLE SCLEROSIS
     Dosage: 0.5 MG, QD
     Route: 048
     Dates: start: 20141201

REACTIONS (3)
  - Multiple sclerosis [Recovering/Resolving]
  - Syncope [Recovering/Resolving]
  - Gait disturbance [Recovering/Resolving]
